FAERS Safety Report 8062876-9 (Version None)
Quarter: 2012Q1

REPORT INFORMATION
  Report Type: 
  Country: None (occurrence: None)
  Receive Date: 20120123
  Receipt Date: 20120118
  Transmission Date: 20120608
  Serious: Yes (Other)
  Sender: FDA-Public Use
  Company Number: CH-JNJFOC-20120105718

PATIENT
  Sex: Female
  Weight: 72 kg

DRUGS (5)
  1. XEPLION [Suspect]
     Indication: PRODUCT USED FOR UNKNOWN INDICATION
     Route: 030
     Dates: start: 20111116
  2. XEPLION [Suspect]
     Route: 030
     Dates: start: 20120112
  3. XEPLION [Suspect]
     Route: 030
     Dates: start: 20111007
  4. XEPLION [Suspect]
     Route: 030
     Dates: start: 20110929
  5. XEPLION [Suspect]
     Route: 030
     Dates: start: 20111214

REACTIONS (2)
  - DRUG LEVEL DECREASED [None]
  - CONDITION AGGRAVATED [None]
